FAERS Safety Report 9514346 (Version 3)
Quarter: 2014Q1

REPORT INFORMATION
  Report Type: Report from Study
  Country: FR (occurrence: FR)
  Receive Date: 20130911
  Receipt Date: 20140225
  Transmission Date: 20141002
  Serious: Yes (Life-Threatening, Hospitalization)
  Sender: FDA-Public Use
  Company Number: PHHY2013FR044134

PATIENT
  Age: 63 Year
  Sex: Male
  Weight: 79 kg

DRUGS (10)
  1. MYCOPHENOLIC ACID [Suspect]
     Indication: IMMUNOSUPPRESSION
     Dosage: 1440 MG, QD
     Route: 048
  2. MYCOPHENOLIC ACID [Suspect]
     Dosage: 300 MG, UNK
     Route: 048
     Dates: start: 20101019, end: 20130423
  3. NEORAL [Suspect]
     Indication: IMMUNOSUPPRESSION
     Dates: start: 20101018, end: 20130308
  4. PROGRAF [Suspect]
     Indication: IMMUNOSUPPRESSION
     Dosage: 7 MG, QD
     Route: 048
  5. PROGRAF [Suspect]
     Dosage: 4 MG, UNK
     Route: 048
     Dates: start: 201302
  6. PROGRAF [Suspect]
     Dates: start: 20130308
  7. CELLCEPT [Concomitant]
     Indication: IMMUNOSUPPRESSION
     Dosage: 500 MG, UNK
     Route: 048
     Dates: start: 20130423
  8. MABTHERA [Concomitant]
     Indication: IMMUNOSUPPRESSION
     Dates: start: 20130308, end: 20130308
  9. METHYLPREDNISOLONE [Concomitant]
     Indication: IMMUNOSUPPRESSION
     Dates: start: 20130308, end: 20130308
  10. CORTANCYL [Concomitant]
     Indication: IMMUNOSUPPRESSION
     Dates: start: 20100413

REACTIONS (12)
  - Gastrointestinal haemorrhage [Recovered/Resolved]
  - Melaena [Recovered/Resolved]
  - Rectal haemorrhage [Recovered/Resolved]
  - Hypovolaemia [Unknown]
  - Gastrointestinal ulcer [Recovered/Resolved]
  - Cardiovascular insufficiency [Recovered/Resolved]
  - Bradycardia [Recovered/Resolved]
  - Fluid overload [Recovered/Resolved]
  - Orthopnoea [Not Recovered/Not Resolved]
  - Cardiac arrest [Recovered/Resolved]
  - Oedema peripheral [Not Recovered/Not Resolved]
  - Ascites [Not Recovered/Not Resolved]
